FAERS Safety Report 17531745 (Version 7)
Quarter: 2020Q4

REPORT INFORMATION
  Report Type: Report from Study
  Country: IT (occurrence: IT)
  Receive Date: 20200312
  Receipt Date: 20201201
  Transmission Date: 20210113
  Serious: Yes (Hospitalization)
  Sender: FDA-Public Use
  Company Number: IT-CELGENEUS-ITA-20200303640

PATIENT
  Age: 69 Year
  Sex: Male
  Weight: 72 kg

DRUGS (11)
  1. FEDRATINIB [Suspect]
     Active Substance: FEDRATINIB
     Indication: MYELOFIBROSIS
     Dosage: 400 MG X 1 X 1 DAYS
     Route: 048
     Dates: start: 20200117, end: 20200221
  2. PANTOPRAZOLE [Concomitant]
     Active Substance: PANTOPRAZOLE
     Indication: GASTRITIS PROPHYLAXIS
     Dosage: 20 MG X 1 X 1 DAYS
     Route: 048
     Dates: start: 20170713
  3. URSODESOXYCHOLIC ACID [Concomitant]
     Active Substance: URSODIOL
     Indication: CHOLELITHIASIS
     Dosage: 300 MG X 3 X 1 DAYS
     Route: 048
     Dates: start: 20200117
  4. ALLOPURINOL. [Concomitant]
     Active Substance: ALLOPURINOL
     Indication: PROPHYLAXIS
     Dosage: 300 MG X 1 X 1 DAYS
     Route: 048
     Dates: start: 20061018
  5. FEDRATINIB [Suspect]
     Active Substance: FEDRATINIB
     Dosage: 200 MG X 1 X 1 DAYS
     Route: 048
     Dates: start: 20200223, end: 20200227
  6. DANAZOLE [Concomitant]
     Indication: MYELOFIBROSIS
     Dosage: 200 MG X 1 X 1 DAYS
     Route: 048
     Dates: start: 20171207
  7. CLONIDINA [Concomitant]
     Indication: HYPERTENSION
     Dosage: 2.5 MG X 1 X 1 WEEKS
     Route: 062
     Dates: start: 20200302
  8. FEDRATINIB [Suspect]
     Active Substance: FEDRATINIB
     Dosage: 300 MG X 1 X 1 DAYS
     Route: 048
     Dates: start: 20200222, end: 20200222
  9. FEDRATINIB [Suspect]
     Active Substance: FEDRATINIB
     Dosage: 0 MG X 1 X 1 DAYS
     Route: 048
     Dates: start: 20200228, end: 20200311
  10. AMLODIPINE [Concomitant]
     Active Substance: AMLODIPINE BESYLATE
     Indication: HYPERTENSION
     Dosage: 10 MG X 1 X 2 DAYS
     Route: 048
     Dates: start: 20200302
  11. ACETYLSALICYLIC ACID [Concomitant]
     Active Substance: ASPIRIN
     Indication: THROMBOSIS PROPHYLAXIS
     Dosage: 100 MG X INTERMITTENT
     Route: 048
     Dates: start: 20180321

REACTIONS (1)
  - Renal failure [Recovered/Resolved]

NARRATIVE: CASE EVENT DATE: 20200214
